FAERS Safety Report 24125822 (Version 2)
Quarter: 2024Q3

REPORT INFORMATION
  Report Type: Spontaneous
  Country: AR (occurrence: AR)
  Receive Date: 20240723
  Receipt Date: 20240813
  Transmission Date: 20241017
  Serious: Yes (Other)
  Sender: PFIZER
  Company Number: AR-PFIZER INC-202400201514

PATIENT
  Age: 64 Year
  Sex: Female

DRUGS (1)
  1. VYNDAMAX [Suspect]
     Active Substance: TAFAMIDIS
     Indication: Cardiac amyloidosis
     Dosage: 61 MG, 1X/DAY
     Dates: start: 20240119

REACTIONS (10)
  - Hypothermia [Unknown]
  - Deafness [Unknown]
  - Pneumonia [Unknown]
  - Fall [Unknown]
  - Injury [Unknown]
  - Cough [Unknown]
  - Balance disorder [Unknown]
  - Anaemia [Unknown]
  - Rash [Unknown]
  - Pain of skin [Unknown]

NARRATIVE: CASE EVENT DATE: 20240601
